FAERS Safety Report 6121805-5 (Version None)
Quarter: 2009Q1

REPORT INFORMATION
  Report Type: 
  Country: None (occurrence: None)
  Receive Date: 20090313
  Receipt Date: 20090313
  Transmission Date: 20090719
  Serious: Yes (Hospitalization)
  Sender: FDA-Public Use
  Company Number: None

PATIENT
  Age: 61 Year
  Sex: Male
  Weight: 65.3 kg

DRUGS (2)
  1. HEPARIN [Suspect]
     Indication: ANTICOAGULANT THERAPY
     Dosage: 25000
     Dates: start: 20081219, end: 20081222
  2. HEPARIN [Suspect]
     Indication: CORONARY ARTERY BYPASS
     Dosage: 25000
     Dates: start: 20081219, end: 20081222

REACTIONS (2)
  - DYSPNOEA EXERTIONAL [None]
  - HEPARIN-INDUCED THROMBOCYTOPENIA [None]
